FAERS Safety Report 23355067 (Version 1)
Quarter: 2024Q1

REPORT INFORMATION
  Report Type: Report from Study
  Country: CA (occurrence: CA)
  Receive Date: 20240102
  Receipt Date: 20240102
  Transmission Date: 20240409
  Serious: Yes (Hospitalization, Other)
  Sender: FDA-Public Use
  Company Number: CA-CELLTRION INC.-2023CA024958

PATIENT

DRUGS (2)
  1. RITUXIMAB [Suspect]
     Active Substance: RITUXIMAB
     Indication: Focal segmental glomerulosclerosis
     Dosage: 1000 MG
     Route: 042
  2. NEURONTIN [Suspect]
     Active Substance: GABAPENTIN
     Indication: Product used for unknown indication
     Route: 065

REACTIONS (10)
  - Skin cancer [Recovering/Resolving]
  - Epilepsy [Recovering/Resolving]
  - Cyst [Recovering/Resolving]
  - Fall [Recovering/Resolving]
  - Gait disturbance [Recovering/Resolving]
  - Tremor [Recovering/Resolving]
  - Illness [Recovering/Resolving]
  - Off label use [Recovering/Resolving]
  - Product dose omission issue [Recovering/Resolving]
  - Intentional product use issue [Unknown]
